FAERS Safety Report 25551083 (Version 1)
Quarter: 2025Q3

REPORT INFORMATION
  Report Type: Spontaneous
  Country: CN (occurrence: CN)
  Receive Date: 20250714
  Receipt Date: 20250714
  Transmission Date: 20251020
  Serious: Yes (Death, Hospitalization, Other)
  Sender: AMGEN
  Company Number: CN-AMGEN INC.-CHNSP2025137447

PATIENT

DRUGS (1)
  1. PARSABIV [Suspect]
     Active Substance: ETELCALCETIDE HYDROCHLORIDE
     Indication: Hyperparathyroidism secondary
     Route: 065

REACTIONS (87)
  - Sudden death [Fatal]
  - Cardiac failure [Unknown]
  - Angina unstable [Unknown]
  - Sepsis [Unknown]
  - Cerebral infarction [Unknown]
  - Gastrointestinal haemorrhage [Unknown]
  - Arrhythmia [Unknown]
  - Myocardial ischaemia [Unknown]
  - Pneumonia aspiration [Unknown]
  - Pneumonia bacterial [Unknown]
  - Bile duct stone [Unknown]
  - Acute myocardial infarction [Unknown]
  - Shunt infection [Unknown]
  - Angina pectoris [Unknown]
  - Cerebral haemorrhage [Unknown]
  - Femur fracture [Unknown]
  - Hyperkalaemia [Unknown]
  - Cholecystitis acute [Unknown]
  - Unevaluable event [Unknown]
  - Cholangitis [Unknown]
  - Shunt aneurysm [Unknown]
  - Enterocolitis [Unknown]
  - Atrial fibrillation [Unknown]
  - Compression fracture [Unknown]
  - Cataract [Unknown]
  - Postinfarction angina [Unknown]
  - Nephritis bacterial [Unknown]
  - Aortic valve disease mixed [Unknown]
  - Hepatic cyst infection [Unknown]
  - Douglas^ abscess [Unknown]
  - Renal cyst infection [Unknown]
  - Borderline ovarian tumour [Unknown]
  - Subclavian vein thrombosis [Unknown]
  - Vascular graft infection [Unknown]
  - Lung adenocarcinoma stage I [Unknown]
  - Cerebral circulatory failure [Unknown]
  - Amyloid arthropathy [Unknown]
  - Hungry bone syndrome [Unknown]
  - Traumatic intracranial haematoma [Unknown]
  - Exfoliation glaucoma [Unknown]
  - Rheumatoid pleuritis [Unknown]
  - Shunt stenosis [Unknown]
  - Pneumonia [Unknown]
  - Blood pressure decreased [Unknown]
  - Blood parathyroid hormone increased [Unknown]
  - Hypocalcaemia [Unknown]
  - Fall [Unknown]
  - Gastrointestinal disorder [Unknown]
  - Contusion [Unknown]
  - Cellulitis [Unknown]
  - Blood phosphorus increased [Unknown]
  - Muscle twitching [Unknown]
  - Nausea [Unknown]
  - Diarrhoea [Unknown]
  - Vomiting [Unknown]
  - Pruritus [Unknown]
  - Large intestine polyp [Unknown]
  - Aortic valve stenosis [Unknown]
  - Blood phosphorus decreased [Unknown]
  - Carpal tunnel syndrome [Unknown]
  - Skin ulcer [Unknown]
  - Cardiovascular disorder [Unknown]
  - Muscle spasms [Unknown]
  - Therapy non-responder [Unknown]
  - Blood calcium abnormal [Unknown]
  - Drug intolerance [Unknown]
  - Blood parathyroid hormone abnormal [Unknown]
  - Nasopharyngitis [Unknown]
  - Paraesthesia [Unknown]
  - Chest pain [Unknown]
  - Treatment noncompliance [Unknown]
  - Peripheral arterial occlusive disease [Unknown]
  - Underdose [Unknown]
  - Dizziness [Unknown]
  - Headache [Unknown]
  - Pyrexia [Unknown]
  - Dyspnoea [Unknown]
  - Parathyroid hyperplasia [Unknown]
  - Puncture site infection [Unknown]
  - Steal syndrome [Unknown]
  - Dialysis hypotension [Unknown]
  - Olfactory dysfunction [Unknown]
  - Locomotive syndrome [Unknown]
  - Blood aluminium increased [Unknown]
  - Limb fracture [Unknown]
  - Airway burns [Unknown]
  - Diabetic gangrene [Unknown]
